FAERS Safety Report 9341481 (Version 4)
Quarter: 2013Q2

REPORT INFORMATION
  Report Type: Spontaneous
  Country: US (occurrence: US)
  Receive Date: 20130611
  Receipt Date: 20130628
  Transmission Date: 20140414
  Serious: Yes (Death, Hospitalization)
  Sender: FDA-Public Use
  Company Number: US-009507513-1306USA003928

PATIENT
  Age: 38 Year
  Sex: Male

DRUGS (4)
  1. THERAPY UNSPECIFIED [Suspect]
     Route: 048
  2. PREZISTA [Concomitant]
  3. NORVIR [Concomitant]
  4. EPZICOM [Concomitant]

REACTIONS (1)
  - Death [Fatal]
